FAERS Safety Report 5467603-7 (Version None)
Quarter: 2007Q3

REPORT INFORMATION
  Report Type: 
  Country: None (occurrence: None)
  Receive Date: 20070921
  Receipt Date: 20070912
  Transmission Date: 20080115
  Serious: Yes (Hospitalization)
  Sender: FDA-Public Use
  Company Number: 15403

PATIENT
  Age: 72 Year
  Sex: Female

DRUGS (23)
  1. FOLINIC ACID [Suspect]
     Indication: COLORECTAL CANCER METASTATIC
     Dosage: 600 MG FORTNIGHTLY IV
     Route: 042
     Dates: start: 20060807, end: 20061106
  2. FLUOROURACIL [Suspect]
     Indication: COLORECTAL CANCER METASTATIC
     Dosage: 3600 MG FORTNIGHTLY IV
     Route: 042
     Dates: start: 20060807, end: 20061106
  3. OXALIPLATIN [Suspect]
     Indication: COLORECTAL CANCER METASTATIC
     Dosage: 128 MG FORTNIGHTLY IV
     Route: 042
     Dates: start: 20060807, end: 20061106
  4. BEVACIZUMAB [Suspect]
     Indication: COLORECTAL CANCER METASTATIC
     Dosage: 230 MG FORTNIGHTLY IV
     Route: 042
     Dates: start: 20060807, end: 20061106
  5. HYDROXYZINE [Concomitant]
  6. SUCRALFATE [Concomitant]
  7. SERTRALINE HCL [Concomitant]
  8. LEVOTHYROXINE SODIUM [Concomitant]
  9. METOPROLOL [Concomitant]
  10. METOCLOPRAMIDE [Concomitant]
  11. LORAZEPAM [Concomitant]
  12. OXYCODONE HCL [Concomitant]
  13. POTASSIUM CHLORIDE [Concomitant]
  14. VITAMIN CAP [Concomitant]
  15. CYANOCOBALAMIN-TANNIN COMPLEX [Concomitant]
  16. CALCIUM [Concomitant]
  17. GLYCOPYRRONIUM BROMIDE [Concomitant]
  18. MORPHINE SUL INJ [Concomitant]
  19. MEGESTROL ACETATE [Concomitant]
  20. FLORASTOR [Concomitant]
  21. GLYCOPYRROLATE [Concomitant]
  22. CARAFATE [Concomitant]
  23. UNITHROID [Concomitant]

REACTIONS (13)
  - ANAEMIA [None]
  - ASTHENIA [None]
  - COLITIS [None]
  - DEHYDRATION [None]
  - DIARRHOEA [None]
  - DIZZINESS [None]
  - FATIGUE [None]
  - FREQUENT BOWEL MOVEMENTS [None]
  - HYPOKALAEMIA [None]
  - HYPOMAGNESAEMIA [None]
  - ORTHOSTATIC HYPOTENSION [None]
  - SHORT-BOWEL SYNDROME [None]
  - URINARY TRACT INFECTION [None]
